FAERS Safety Report 12582485 (Version 1)
Quarter: 2016Q3

REPORT INFORMATION
  Report Type: Report from Study
  Country: US (occurrence: US)
  Receive Date: 20160722
  Receipt Date: 20160722
  Transmission Date: 20161109
  Serious: Yes (Other)
  Sender: FDA-Public Use
  Company Number: US-ROCHE-1799503

PATIENT
  Age: 69 Year
  Sex: Female
  Weight: 46.4 kg

DRUGS (4)
  1. VISMODEGIB [Suspect]
     Active Substance: VISMODEGIB
     Indication: PANCREATIC CARCINOMA
     Dosage: ASSIGNED CODE: TAC1, COURSE 2
     Route: 048
     Dates: start: 20120210
  2. GEMCITABINE HYDROCHLORIDE. [Suspect]
     Active Substance: GEMCITABINE HYDROCHLORIDE
     Indication: PANCREATIC CARCINOMA
     Dosage: OVER 30 MINUTES ON DAYS 1, 8, AND 15.
     Route: 042
     Dates: start: 20120210
  3. GEMCITABINE HYDROCHLORIDE. [Suspect]
     Active Substance: GEMCITABINE HYDROCHLORIDE
     Route: 042
     Dates: start: 20120309, end: 20120406
  4. VISMODEGIB [Suspect]
     Active Substance: VISMODEGIB
     Dosage: ASSIGNED CODE: TAC1, COURSE 3
     Route: 048
     Dates: start: 20120309, end: 20120406

REACTIONS (2)
  - Anaemia [Unknown]
  - Upper gastrointestinal haemorrhage [Unknown]
